FAERS Safety Report 14612771 (Version 1)
Quarter: 2018Q1

REPORT INFORMATION
  Report Type: Other
  Country: IT (occurrence: IT)
  Receive Date: 20180308
  Receipt Date: 20180308
  Transmission Date: 20180509
  Serious: Yes (Other)
  Sender: FDA-Public Use
  Company Number: IT-VELOXIS PHARMACEUTICALS-2043269

PATIENT
  Age: 43 Year
  Sex: Male

DRUGS (3)
  1. ENVARSUS XR [Suspect]
     Active Substance: TACROLIMUS
     Indication: RENAL TRANSPLANT
  2. BASILIXIMAB [Suspect]
     Active Substance: BASILIXIMAB
  3. MYCOPHENOLIC ACID. [Suspect]
     Active Substance: MYCOPHENOLIC ACID

REACTIONS (2)
  - Haemolytic uraemic syndrome [Recovered/Resolved]
  - Transplant rejection [Recovered/Resolved]
